FAERS Safety Report 6016967-4 (Version None)
Quarter: 2008Q4

REPORT INFORMATION
  Report Type: 
  Country: None (occurrence: None)
  Receive Date: 20081219
  Receipt Date: 20081204
  Transmission Date: 20090506
  Serious: Yes (Hospitalization)
  Sender: FDA-Public Use
  Company Number: KV200800962

PATIENT
  Age: 77 Year
  Sex: Female
  Weight: 70.3 kg

DRUGS (7)
  1. ISOSORBIDE MONONITRATE [Suspect]
     Indication: CORONARY ARTERY DISEASE
     Dosage: 60 MG, BID, ORAL
     Route: 048
     Dates: start: 20060101, end: 20081203
  2. PLAVIX [Concomitant]
  3. NORVASC [Concomitant]
  4. ASPIRIN [Concomitant]
  5. ATENOLOL [Concomitant]
  6. SIMVASTATIN [Concomitant]
  7. LEVOTHYROXINE SODIUM [Concomitant]

REACTIONS (4)
  - DIZZINESS [None]
  - PRODUCT QUALITY ISSUE [None]
  - SYNCOPE [None]
  - VOMITING [None]
